FAERS Safety Report 9186683 (Version 1)
Quarter: 2012Q4

REPORT INFORMATION
  Report Type: 
  Country: DE (occurrence: DE)
  Receive Date: 20121102
  Receipt Date: 20121102
  Transmission Date: 20130627
  Serious: Yes (Other)
  Sender: FDA-Public Use
  Company Number: DE-SANOFI-AVENTIS-2012SA079858

PATIENT

DRUGS (5)
  1. MULTAQ [Suspect]
     Indication: DRUG USE FOR UNKNOWN INDICATION
     Dosage: 1/2 tablet twice a day
     Route: 048
  2. MULTAQ [Suspect]
     Indication: DRUG USE FOR UNKNOWN INDICATION
     Route: 048
  3. BETA BLOCKING AGENTS [Concomitant]
     Route: 065
  4. ANTIHYPERTENSIVES [Concomitant]
     Route: 065
  5. FLUVASTATIN [Concomitant]
     Dosage: reduced dose
     Route: 065

REACTIONS (3)
  - Atrial fibrillation [Recovered/Resolved]
  - Underdose [Unknown]
  - Diarrhoea [Recovered/Resolved]
